FAERS Safety Report 5091357-X (Version None)
Quarter: 2006Q3

REPORT INFORMATION
  Report Type: 
  Country: None (occurrence: None)
  Receive Date: 20060829
  Receipt Date: 20060816
  Transmission Date: 20061208
  Serious: Yes (Other)
  Sender: FDA-Public Use
  Company Number: FR-NOVOPROD-256310

PATIENT
  Age: 15 Year
  Sex: Female

DRUGS (1)
  1. NORDITROPIN SIMPLEXX [Suspect]
     Indication: BODY HEIGHT BELOW NORMAL
     Dosage: .7 -1.0 UNIT/ KG/ WEEK
     Dates: start: 20010201, end: 20051001

REACTIONS (1)
  - EWING'S SARCOMA RECURRENT [None]
